FAERS Safety Report 12052896 (Version 1)
Quarter: 2016Q1

REPORT INFORMATION
  Report Type: Report from Study
  Country: US (occurrence: US)
  Receive Date: 20160209
  Receipt Date: 20160209
  Transmission Date: 20160526
  Serious: Yes (Hospitalization)
  Sender: FDA-Public Use
  Company Number: US-BIOGEN-2009BI034608

PATIENT
  Age: 45 Year
  Sex: Female

DRUGS (3)
  1. RADIOACTIVE IODINE [Concomitant]
     Active Substance: SODIUM IODIDE I-131
     Indication: HYPERTHYROIDISM
     Route: 065
     Dates: start: 2006, end: 2006
  2. TYSABRI [Suspect]
     Active Substance: NATALIZUMAB
     Route: 042
     Dates: start: 20070511
  3. TYSABRI [Suspect]
     Active Substance: NATALIZUMAB
     Indication: MULTIPLE SCLEROSIS
     Route: 042
     Dates: start: 20050222, end: 20050223

REACTIONS (5)
  - Procedural pain [Recovered/Resolved]
  - Herpes zoster [Unknown]
  - Osteoarthritis [Recovered/Resolved]
  - Multiple sclerosis relapse [Recovered/Resolved]
  - Memory impairment [Not Recovered/Not Resolved]

NARRATIVE: CASE EVENT DATE: 200502
